FAERS Safety Report 7258572-8 (Version None)
Quarter: 2011Q1

REPORT INFORMATION
  Report Type: 
  Country: None (occurrence: None)
  Receive Date: 20110129
  Receipt Date: 20100502
  Transmission Date: 20110831
  Serious: No
  Sender: FDA-Public Use
  Company Number: US-ABBOTT-08P-163-0471874-00

PATIENT
  Sex: Male
  Weight: 72.64 kg

DRUGS (7)
  1. ANTI-DEPRESSANT [Concomitant]
     Indication: DEPRESSION
  2. PREDNISONE [Concomitant]
     Indication: INFLAMMATION
     Route: 048
  3. METAMUCIL-2 [Concomitant]
     Indication: GASTROINTESTINAL DISORDER
     Route: 048
  4. MERCAPTOPURINE [Concomitant]
     Route: 048
     Dates: start: 20080804
  5. MERCAPTOPURINE [Concomitant]
     Indication: CROHN'S DISEASE
     Route: 048
     Dates: end: 20080804
  6. HUMIRA [Suspect]
     Indication: CROHN'S DISEASE
     Route: 050
     Dates: start: 20080623
  7. CIPRO [Concomitant]
     Indication: DIARRHOEA
     Route: 048
     Dates: start: 20080728

REACTIONS (2)
  - WEIGHT DECREASED [None]
  - DIARRHOEA [None]
